FAERS Safety Report 24554583 (Version 2)
Quarter: 2024Q4

REPORT INFORMATION
  Report Type: Report from Study
  Country: IN (occurrence: IN)
  Receive Date: 20241028
  Receipt Date: 20241121
  Transmission Date: 20250115
  Serious: Yes (Other)
  Sender: ROCHE
  Company Number: IN-ROCHE-10000067427

PATIENT
  Age: 54 Year
  Sex: Female

DRUGS (2)
  1. TECENTRIQ [Suspect]
     Active Substance: ATEZOLIZUMAB
     Indication: Lung neoplasm malignant
     Route: 042
     Dates: start: 20240724
  2. TECENTRIQ [Suspect]
     Active Substance: ATEZOLIZUMAB
     Route: 042

REACTIONS (4)
  - Pancytopenia [Unknown]
  - Hypertension [Unknown]
  - Off label use [Unknown]
  - Thrombocytopenia [Unknown]
